FAERS Safety Report 13749496 (Version 1)
Quarter: 2017Q3

REPORT INFORMATION
  Report Type: Spontaneous
  Country: None (occurrence: US)
  Receive Date: 20170713
  Receipt Date: 20170713
  Transmission Date: 20171127
  Serious: No
  Sender: FDA-Public Use
  Company Number: None

PATIENT
  Age: 53 Year
  Sex: Female

DRUGS (1)
  1. HUMIRA [Suspect]
     Active Substance: ADALIMUMAB
     Indication: PSORIASIS
     Dosage: 40MG DAY 22 DAY 1, DAY 8 AND DAY 22 SUBCUTANEOUSLY
     Route: 058
     Dates: start: 20170628, end: 20170705

REACTIONS (3)
  - Chest discomfort [None]
  - Anxiety [None]
  - Abdominal pain upper [None]

NARRATIVE: CASE EVENT DATE: 20170705
